FAERS Safety Report 4593338-9 (Version None)
Quarter: 2005Q1

REPORT INFORMATION
  Report Type: 
  Country: None (occurrence: None)
  Receive Date: 20050224
  Receipt Date: 20040429
  Transmission Date: 20050727
  Serious: Yes (Other)
  Sender: FDA-Public Use
  Company Number: US-BRISTOL-MYERS SQUIBB COMPANY-12574182

PATIENT
  Age: 19 Year
  Sex: Male

DRUGS (1)
  1. EXCEDRIN (MIGRAINE) [Suspect]
     Indication: HEADACHE
     Dosage: DOSE: 11 TABLETS AT ONCE.
     Route: 048
     Dates: start: 20040429, end: 20040429

REACTIONS (2)
  - ABDOMINAL PAIN [None]
  - ACCIDENTAL OVERDOSE [None]
